FAERS Safety Report 8172448-3 (Version None)
Quarter: 2012Q1

REPORT INFORMATION
  Report Type: 
  Country: None (occurrence: None)
  Receive Date: 20120224
  Receipt Date: 20120224
  Transmission Date: 20120608
  Serious: No
  Sender: FDA-Public Use
  Company Number: None

PATIENT
  Age: 43 Year
  Sex: Male

DRUGS (1)
  1. MINOCYCLINE HCL [Suspect]
     Dates: start: 20100715, end: 20100805

REACTIONS (6)
  - SPLENOMEGALY [None]
  - ASCITES [None]
  - VARICES OESOPHAGEAL [None]
  - HEPATITIS [None]
  - LIVER INJURY [None]
  - CHOLELITHIASIS [None]
